FAERS Safety Report 4845493-0 (Version None)
Quarter: 2005Q4

REPORT INFORMATION
  Report Type: 
  Country: None (occurrence: None)
  Receive Date: 20051201
  Receipt Date: 20051114
  Transmission Date: 20060501
  Serious: Yes (Disabling)
  Sender: FDA-Public Use
  Company Number: USA0510111712

PATIENT
  Age: 54 Year
  Sex: Female

DRUGS (5)
  1. HUMULIN (HUMAN INSULIN (RDNA ORIGIN) 30% REGULAR, 70% NPH) VIAL [Suspect]
     Indication: DIABETES MELLITUS
     Dosage: 75 U, DAILY (1/D)
     Dates: start: 20040101, end: 20050101
  2. HUMULIN (HUMAN INSULIN (RDNA ORIGIN) REGULAR) VIAL [Suspect]
     Indication: DIABETES MELLITUS
     Dosage: AS NEEDED
     Dates: start: 20040101
  3. HUMULIN (HUMAN INSULIN (RDNA ORIGIN) REGULAR) VIAL [Suspect]
  4. HUMALOG [Suspect]
     Indication: DIABETES MELLITUS
     Dates: start: 20050101
  5. HUMALOG [Suspect]

REACTIONS (7)
  - DEPRESSION [None]
  - DIABETES MELLITUS INADEQUATE CONTROL [None]
  - HYPOTENSION [None]
  - NARCOLEPSY [None]
  - NEUROPATHY PERIPHERAL [None]
  - OESOPHAGEAL DISORDER [None]
  - SLEEP APNOEA SYNDROME [None]
